FAERS Safety Report 7760274-6 (Version None)
Quarter: 2011Q3

REPORT INFORMATION
  Report Type: 
  Country: None (occurrence: None)
  Receive Date: 20110919
  Receipt Date: 20110916
  Transmission Date: 20111222
  Serious: Yes (Hospitalization)
  Sender: FDA-Public Use
  Company Number: GB-GLAXOSMITHKLINE-Z0010648A

PATIENT
  Sex: Female
  Weight: 79.1 kg

DRUGS (2)
  1. LAPATINIB [Suspect]
     Indication: BREAST CANCER METASTATIC
     Dosage: 1250MG PER DAY
     Route: 048
     Dates: start: 20110630
  2. CAPECITABINE [Suspect]
     Indication: BREAST CANCER METASTATIC
     Dosage: 2000MGM2 CYCLIC
     Route: 048
     Dates: start: 20110630

REACTIONS (4)
  - HEADACHE [None]
  - RASH [None]
  - VIRAL INFECTION [None]
  - PYREXIA [None]
